FAERS Safety Report 14640941 (Version 3)
Quarter: 2018Q2

REPORT INFORMATION
  Report Type: Spontaneous
  Country: DE (occurrence: DE)
  Receive Date: 20180315
  Receipt Date: 20180524
  Transmission Date: 20180711
  Serious: Yes (Death, Hospitalization, Other)
  Sender: FDA-Public Use
  Company Number: DE-WEST-WARD PHARMACEUTICALS CORP.-DE-H14001-18-01851

PATIENT
  Age: 64 Year
  Sex: Female
  Weight: 68 kg

DRUGS (14)
  1. SPIRONOLACTON [Concomitant]
     Active Substance: SPIRONOLACTONE
     Indication: CHRONIC OBSTRUCTIVE PULMONARY DISEASE
     Dosage: 25 MILLIGRAM
     Route: 048
     Dates: start: 20160826, end: 20180408
  2. BERODUAL [Concomitant]
     Active Substance: FENOTEROL HYDROBROMIDE\IPRATROPIUM BROMIDE
     Indication: CHRONIC OBSTRUCTIVE PULMONARY DISEASE
     Dosage: 3 MILLILITER
     Route: 055
     Dates: start: 20160826, end: 20180408
  3. ABRAXANE [Suspect]
     Active Substance: PACLITAXEL
     Indication: NON-SMALL CELL LUNG CANCER
     Route: 041
     Dates: start: 20171207
  4. ABRAXANE [Suspect]
     Active Substance: PACLITAXEL
     Route: 041
     Dates: start: 20170822
  5. NEBIVOLOL. [Concomitant]
     Active Substance: NEBIVOLOL
     Indication: HYPERTENSION
     Dosage: 2.5 MILLIGRAM
     Route: 048
     Dates: start: 20160816, end: 20180408
  6. SPIRIVA [Concomitant]
     Active Substance: TIOTROPIUM BROMIDE MONOHYDRATE
     Indication: CHRONIC OBSTRUCTIVE PULMONARY DISEASE
     Dosage: 18 MICROGRAM
     Route: 048
     Dates: start: 20160826, end: 20180408
  7. PREDNISOLON [Concomitant]
     Active Substance: PREDNISOLONE
     Indication: CHRONIC OBSTRUCTIVE PULMONARY DISEASE
     Dosage: 30 MILLIGRAM
     Route: 048
     Dates: start: 20170105, end: 20180408
  8. CANDESARTAN. [Concomitant]
     Active Substance: CANDESARTAN
     Indication: HYPERTENSION
     Dosage: 8 MILLIGRAM
     Route: 048
     Dates: start: 20160826, end: 20180408
  9. TORASEMID [Concomitant]
     Active Substance: TORSEMIDE
     Indication: HYPERTENSION
     Dosage: 50 MILLIGRAM
     Route: 048
     Dates: start: 20160826, end: 20180408
  10. CARBOPLATIN. [Suspect]
     Active Substance: CARBOPLATIN
     Indication: NON-SMALL CELL LUNG CANCER
     Dosage: 6 MG*MIN/ML
     Route: 041
     Dates: start: 20170822, end: 20180104
  11. ASPIRIN. [Concomitant]
     Active Substance: ASPIRIN
     Indication: PROPHYLAXIS
     Dosage: 100 MILLIGRAM
     Route: 048
     Dates: start: 20160826, end: 20180408
  12. PREDNISOLON [Concomitant]
     Active Substance: PREDNISOLONE
     Route: 041
     Dates: start: 20180216, end: 20180223
  13. ABRAXANE [Suspect]
     Active Substance: PACLITAXEL
     Route: 041
     Dates: start: 20180104, end: 20180201
  14. VIANI [Concomitant]
     Active Substance: FLUTICASONE PROPIONATE\SALMETEROL XINAFOATE
     Indication: CHRONIC OBSTRUCTIVE PULMONARY DISEASE
     Dosage: 100 MICROGRAM
     Route: 048
     Dates: start: 20160826, end: 20180408

REACTIONS (5)
  - Constipation [Recovered/Resolved]
  - Off label use [Unknown]
  - Bronchopulmonary aspergillosis [Recovering/Resolving]
  - Pneumothorax [Not Recovered/Not Resolved]
  - General physical health deterioration [Fatal]

NARRATIVE: CASE EVENT DATE: 20180103
